FAERS Safety Report 6306414-7 (Version None)
Quarter: 2009Q3

REPORT INFORMATION
  Report Type: 
  Country: None (occurrence: None)
  Receive Date: 20090812
  Receipt Date: 20090805
  Transmission Date: 20100115
  Serious: Yes (Hospitalization)
  Sender: FDA-Public Use
  Company Number: US-ASTRAZENECA-2009SE06894

PATIENT
  Sex: Female
  Weight: 50.8 kg

DRUGS (6)
  1. SEROQUEL [Suspect]
     Route: 048
  2. ARICEPT [Concomitant]
  3. NAMENDA [Concomitant]
  4. LOTENSIN [Concomitant]
  5. METOPROLOL TARTRATE [Concomitant]
  6. AMLODIPINE [Concomitant]

REACTIONS (2)
  - HALLUCINATION [None]
  - LOSS OF CONSCIOUSNESS [None]
